FAERS Safety Report 4765926-8 (Version None)
Quarter: 2005Q3

REPORT INFORMATION
  Report Type: 
  Country: None (occurrence: None)
  Receive Date: 20050906
  Receipt Date: 20050819
  Transmission Date: 20060218
  Serious: Yes (Other)
  Sender: FDA-Public Use
  Company Number: FR_050806984

PATIENT
  Age: 46 Year
  Sex: Female

DRUGS (2)
  1. PROZAC [Suspect]
     Indication: DEPRESSION
     Dosage: 20 MG DAY
     Dates: start: 20030101
  2. SURGESTONE (PROMEGESTONE) [Concomitant]

REACTIONS (3)
  - DIZZINESS [None]
  - GAMMA-GLUTAMYLTRANSFERASE INCREASED [None]
  - HYPERTRIGLYCERIDAEMIA [None]
